FAERS Safety Report 6102699-0 (Version None)
Quarter: 2009Q1

REPORT INFORMATION
  Report Type: 
  Country: None (occurrence: None)
  Receive Date: 20090304
  Receipt Date: 20070619
  Transmission Date: 20090719
  Serious: Yes (Other)
  Sender: FDA-Public Use
  Company Number: B0475849A

PATIENT

DRUGS (2)
  1. REQUIP [Suspect]
     Indication: DRUG USE FOR UNKNOWN INDICATION
     Route: 065
  2. PRAMIPEXOLE DIHYDROCHLORIDE [Concomitant]

REACTIONS (3)
  - AGGRESSION [None]
  - SOMNOLENCE [None]
  - SUDDEN ONSET OF SLEEP [None]
